FAERS Safety Report 20236549 (Version 11)
Quarter: 2022Q2

REPORT INFORMATION
  Report Type: Report from Study
  Country: US (occurrence: US)
  Receive Date: 20211228
  Receipt Date: 20220503
  Transmission Date: 20220721
  Serious: Yes (Hospitalization, Other)
  Sender: FDA-Public Use
  Company Number: NVSC2021US297725

PATIENT
  Sex: Female

DRUGS (3)
  1. ENTRESTO [Suspect]
     Active Substance: SACUBITRIL\VALSARTAN
     Indication: Cardiac failure chronic
     Dosage: 1 DOSAGE FORM, BID (49/51 MG)
     Route: 048
     Dates: start: 202106, end: 202203
  2. PLAVIX [Concomitant]
     Active Substance: CLOPIDOGREL BISULFATE
     Indication: Product used for unknown indication
     Dosage: UNK
     Route: 065
  3. BRILINTA [Concomitant]
     Active Substance: TICAGRELOR
     Indication: Product used for unknown indication
     Dosage: UNK
     Route: 065

REACTIONS (24)
  - Pneumonia [Unknown]
  - Dyspnoea [Unknown]
  - Respiratory failure [Unknown]
  - Decreased appetite [Recovering/Resolving]
  - Cardiac failure [Unknown]
  - Haemorrhage [Unknown]
  - Insomnia [Unknown]
  - Weight increased [Unknown]
  - Ageusia [Unknown]
  - Memory impairment [Unknown]
  - Depression [Unknown]
  - Fear [Unknown]
  - Dry throat [Unknown]
  - Glossodynia [Unknown]
  - Dry mouth [Unknown]
  - Odynophagia [Unknown]
  - Oropharyngeal pain [Not Recovered/Not Resolved]
  - Heart rate decreased [Recovering/Resolving]
  - Abdominal discomfort [Unknown]
  - Nasopharyngitis [Unknown]
  - Influenza [Unknown]
  - Asthenia [Unknown]
  - Dizziness [Unknown]
  - Cough [Recovered/Resolved]
